FAERS Safety Report 14909013 (Version 1)
Quarter: 2018Q2

REPORT INFORMATION
  Report Type: Spontaneous
  Country: US (occurrence: US)
  Receive Date: 20180517
  Receipt Date: 20180517
  Transmission Date: 20180711
  Serious: No
  Sender: FDA-Public Use
  Company Number: US-PFIZER INC-2018200843

PATIENT
  Age: 46 Year
  Sex: Female
  Weight: 61.23 kg

DRUGS (5)
  1. TOPAMAX [Concomitant]
     Active Substance: TOPIRAMATE
     Dosage: UNK
  2. LYRICA [Suspect]
     Active Substance: PREGABALIN
     Indication: FIBROMYALGIA
     Dosage: 125 MG, 3X/DAY
     Dates: start: 201712
  3. LYRICA [Suspect]
     Active Substance: PREGABALIN
     Dosage: 125 MG, 1X/DAY (AT NIGHT)
  4. LYRICA [Suspect]
     Active Substance: PREGABALIN
     Dosage: 125 MG, 2X/DAY
  5. TOPAMAX [Concomitant]
     Active Substance: TOPIRAMATE
     Dosage: UNK
     Dates: start: 2018

REACTIONS (2)
  - Intentional product use issue [Unknown]
  - Headache [Recovering/Resolving]

NARRATIVE: CASE EVENT DATE: 201805
